FAERS Safety Report 10731944 (Version 1)
Quarter: 2015Q1

REPORT INFORMATION
  Report Type: Report from Study
  Country: CA (occurrence: None)
  Receive Date: 20150120
  Receipt Date: 20150120
  Transmission Date: 20150721
  Serious: Yes (Death, Hospitalization, Other)
  Sender: FDA-Public Use
  Company Number: 2014FE02961

PATIENT
  Age: 66 Year
  Sex: Male

DRUGS (12)
  1. ROSUVASTATIN [Concomitant]
     Active Substance: ROSUVASTATIN
  2. NITROGLYCERIN (GLYCERYL TRINITRATE) [Concomitant]
  3. AVODART (DUTASTERIDE) [Concomitant]
  4. ALLOPURINOL. [Concomitant]
     Active Substance: ALLOPURINOL
  5. ACETYLSALICYLIC ACID [Concomitant]
     Active Substance: ASPIRIN
  6. FIRMAGON [Suspect]
     Active Substance: DEGARELIX ACETATE
     Indication: PROSTATE CANCER
     Route: 058
     Dates: start: 20131026
  7. RAMIPRIL. [Concomitant]
     Active Substance: RAMIPRIL
  8. TAMSULOSIN [Concomitant]
     Active Substance: TAMSULOSIN
  9. BISOPROLOL [Concomitant]
     Active Substance: BISOPROLOL
  10. PIPERAZINE CITRATE [Concomitant]
     Active Substance: PIPERAZINE CITRATE
  11. SERTRALINE [Concomitant]
     Active Substance: SERTRALINE HYDROCHLORIDE
  12. MYRBETRIQ (MIRABEGRON) [Concomitant]

REACTIONS (2)
  - General physical condition abnormal [None]
  - Pain [None]

NARRATIVE: CASE EVENT DATE: 2014
